FAERS Safety Report 22265872 (Version 2)
Quarter: 2023Q2

REPORT INFORMATION
  Report Type: Spontaneous
  Country: HU (occurrence: HU)
  Receive Date: 20230428
  Receipt Date: 20230628
  Transmission Date: 20230722
  Serious: Yes (Other)
  Sender: FDA-Public Use
  Company Number: HU-TEVA-2023-HU-2880805

PATIENT
  Age: 18 Year
  Sex: Male

DRUGS (3)
  1. METHYLPREDNISOLONE [Suspect]
     Active Substance: METHYLPREDNISOLONE
     Indication: Chorioretinitis
     Dosage: 500 MILLIGRAM DAILY; TAPERING-OFF
     Route: 065
     Dates: start: 2020, end: 2020
  2. CYCLOPENTOLATE [Concomitant]
     Active Substance: CYCLOPENTOLATE
     Indication: Chorioretinitis
     Route: 047
     Dates: start: 2020, end: 2020
  3. DEXAMETHASONE [Concomitant]
     Active Substance: DEXAMETHASONE
     Indication: Chorioretinitis
     Route: 065
     Dates: start: 2020, end: 2020

REACTIONS (5)
  - Oesophageal ulcer [Recovered/Resolved]
  - Ulcer [Recovered/Resolved]
  - Duodenal ulcer [Recovered/Resolved]
  - Gastrooesophageal reflux disease [Recovered/Resolved]
  - Faeces discoloured [Recovered/Resolved]

NARRATIVE: CASE EVENT DATE: 20200101
